FAERS Safety Report 16419204 (Version 1)
Quarter: 2019Q2

REPORT INFORMATION
  Report Type: Spontaneous
  Country: US (occurrence: US)
  Receive Date: 20190612
  Receipt Date: 20190612
  Transmission Date: 20190711
  Serious: Yes (Death)
  Sender: FDA-Public Use
  Company Number: US-GW PHARMA-201906USGW1808

PATIENT

DRUGS (1)
  1. EPIDIOLEX [Suspect]
     Active Substance: CANNABIDIOL
     Indication: LENNOX-GASTAUT SYNDROME
     Dosage: 400 MILLIGRAM, BID
     Route: 048
     Dates: start: 20190412

REACTIONS (3)
  - Acute kidney injury [Fatal]
  - Dehydration [Fatal]
  - Renal failure [Fatal]

NARRATIVE: CASE EVENT DATE: 2019
